FAERS Safety Report 8214279 (Version 2)
Quarter: 2012Q4

REPORT INFORMATION
  Report Type: 
  Country: US (occurrence: US)
  Receive Date: 20111030
  Receipt Date: 20121023
  Transmission Date: 20130627
  Serious: No
  Sender: FDA-Public Use
  Company Number: US-AMGEN-USASP2011023690

PATIENT
  Age: 41 Year
  Sex: Female

DRUGS (3)
  1. ENBREL [Suspect]
     Indication: PSORIASIS
     Dosage: 50 mg, 2 times/wk
     Dates: start: 20110502, end: 201109
  2. ENBREL [Suspect]
     Indication: PSORIATIC ARTHROPATHY
  3. STELARA [Concomitant]
     Dosage: UNK
     Dates: start: 201109

REACTIONS (1)
  - Psoriasis [Recovering/Resolving]
